FAERS Safety Report 24978687 (Version 1)
Quarter: 2025Q1

REPORT INFORMATION
  Report Type: Spontaneous
  Country: FR (occurrence: FR)
  Receive Date: 20250218
  Receipt Date: 20250218
  Transmission Date: 20250409
  Serious: Yes (Hospitalization)
  Sender: MERCK KGAA
  Company Number: FR-Merck Healthcare KGaA-2025006783

PATIENT
  Age: 11 Year
  Sex: Male

DRUGS (2)
  1. LEVOTHYROXINE [Suspect]
     Active Substance: LEVOTHYROXINE
     Indication: Autoimmune thyroiditis
  2. LEVOTHYROXINE [Suspect]
     Active Substance: LEVOTHYROXINE

REACTIONS (9)
  - Blood glucose abnormal [Unknown]
  - Growth retardation [Unknown]
  - Weight gain poor [Unknown]
  - Blood thyroid stimulating hormone increased [Unknown]
  - Disturbance in attention [Unknown]
  - Daydreaming [Unknown]
  - Poor quality sleep [Unknown]
  - Middle insomnia [Unknown]
  - Restlessness [Unknown]
